FAERS Safety Report 6893005-2 (Version None)
Quarter: 2010Q3

REPORT INFORMATION
  Report Type: 
  Country: None (occurrence: None)
  Receive Date: 20100731
  Receipt Date: 20090108
  Transmission Date: 20110219
  Serious: No
  Sender: FDA-Public Use
  Company Number: US-PFIZER INC-2008070046

PATIENT
  Sex: Male
  Weight: 113.6 kg

DRUGS (7)
  1. GABAPENTIN [Suspect]
     Indication: NERVE COMPRESSION
     Dosage: 600 MG, 2X/DAY
     Dates: start: 20070101, end: 20070101
  2. MORPHINE [Concomitant]
  3. SOMA [Concomitant]
  4. CLONAZEPAM [Concomitant]
     Dosage: UNK
  5. AMLODIPINE BESYLATE [Concomitant]
     Dosage: UNK
  6. CITALOPRAM [Concomitant]
     Dosage: UNK
  7. RESTORIL [Concomitant]
     Dosage: UNK

REACTIONS (1)
  - DRUG INEFFECTIVE [None]
